FAERS Safety Report 11349776 (Version 1)
Quarter: 2015Q3

REPORT INFORMATION
  Report Type: Spontaneous
  Country: GB (occurrence: None)
  Receive Date: 20150806
  Receipt Date: 20150806
  Transmission Date: 20151125
  Serious: No
  Sender: FDA-Public Use
  Company Number: None

PATIENT
  Age: 54 Year
  Sex: Female
  Weight: 63.5 kg

DRUGS (2)
  1. BOCOUTURE [Suspect]
     Active Substance: BOTULINUM TOXIN TYPE A
     Route: 030
  2. ZOPICLONE [Concomitant]
     Active Substance: ZOPICLONE

REACTIONS (6)
  - Dizziness [None]
  - Feeling abnormal [None]
  - Insomnia [None]
  - Nasal discomfort [None]
  - Head discomfort [None]
  - Vision blurred [None]

NARRATIVE: CASE EVENT DATE: 20150227
